FAERS Safety Report 11222262 (Version 1)
Quarter: 2015Q2

REPORT INFORMATION
  Report Type: Report from Study
  Country: FR (occurrence: FR)
  Receive Date: 20150626
  Receipt Date: 20150626
  Transmission Date: 20150821
  Serious: Yes (Hospitalization)
  Sender: FDA-Public Use
  Company Number: FR-009507513-1504FRA021774

PATIENT
  Age: 73 Year
  Sex: Female
  Weight: 67 kg

DRUGS (16)
  1. BISOPROLOL [Concomitant]
     Active Substance: BISOPROLOL
     Indication: ATRIAL FIBRILLATION
     Dosage: 2.5 MG, BID, FORMULATION; PILL
     Route: 048
     Dates: start: 20140324
  2. SERETIDE [Concomitant]
     Active Substance: FLUTICASONE FUROATE\SALMETEROL XINAFOATE
     Indication: DYSPNOEA
     Dosage: BID, TOTAL DAILY DOSE: 125 MICROGRAM, FORMULATION: PILL
     Route: 048
     Dates: start: 20141219
  3. PEMBROLIZUMAB. [Suspect]
     Active Substance: PEMBROLIZUMAB
     Dosage: 10 MG/KG, Q2W
     Route: 042
     Dates: start: 20150403, end: 20150403
  4. COUMADIN [Concomitant]
     Active Substance: WARFARIN SODIUM
     Indication: ANTICOAGULANT THERAPY
     Dosage: 2.5 MG, QD, FORMULATION: PILL
     Route: 048
     Dates: start: 20150220
  5. ALBUTEROL SULFATE. [Suspect]
     Active Substance: ALBUTEROL SULFATE
     Indication: CHRONIC OBSTRUCTIVE PULMONARY DISEASE
     Dosage: 100 MICROGRAM, TID, FORMULATION: INHALANT
     Route: 055
     Dates: start: 20141128
  6. SKENAN [Concomitant]
     Active Substance: MORPHINE SULFATE
     Indication: PAIN
     Dosage: 10 MG, BID, FORMULATION: PILL
     Route: 048
     Dates: start: 20140225
  7. PEMBROLIZUMAB. [Suspect]
     Active Substance: PEMBROLIZUMAB
     Indication: MALIGNANT MELANOMA
     Dosage: 10 MG/KG, Q2W
     Route: 042
     Dates: start: 20140128, end: 20150320
  8. OXYNORM [Concomitant]
     Active Substance: OXYCODONE HYDROCHLORIDE
     Indication: PAIN
     Dosage: TOTAL DAILY DOSE: 30 MG, PRN
     Route: 002
     Dates: start: 201401
  9. OXYCONTIN [Concomitant]
     Active Substance: OXYCODONE HYDROCHLORIDE
     Indication: PAIN
     Dosage: TID, TOTAL DAILY DOSE 10 MG
     Route: 048
     Dates: start: 20140101
  10. XANAX [Concomitant]
     Active Substance: ALPRAZOLAM
     Indication: ANXIETY
     Dosage: 0.5 MG, QD
     Route: 048
     Dates: start: 20140324
  11. SOLUPRED [Concomitant]
     Active Substance: PREDNISOLONE
     Indication: RENAL FAILURE
     Dosage: 7.5 MICROGRAM, QD, FORMULATION:PILL
     Route: 048
     Dates: start: 20141219
  12. LEVOTHYROXINE SODIUM. [Concomitant]
     Active Substance: LEVOTHYROXINE SODIUM
     Indication: HYPOTHYROIDISM
     Dosage: 37.5 MICROGRAM, QD, FORMULATION: PILL
     Route: 048
     Dates: start: 20140817
  13. PEMBROLIZUMAB. [Suspect]
     Active Substance: PEMBROLIZUMAB
     Dosage: 10 MG/KG, Q2W
     Route: 042
     Dates: start: 20150417
  14. ACTISKENAN [Concomitant]
     Active Substance: MORPHINE SULFATE
     Indication: PAIN
     Dosage: 5 MG, QD, FORMULATION:PILL
     Route: 048
     Dates: start: 20140225
  15. LOVENOX [Concomitant]
     Active Substance: ENOXAPARIN SODIUM
     Indication: ATRIAL FIBRILLATION
     Dosage: 0.6 ML, ONCE
     Route: 042
     Dates: start: 20140324
  16. AMLOR [Concomitant]
     Active Substance: AMLODIPINE BESYLATE
     Indication: BLOOD PRESSURE INCREASED
     Dosage: 10 MG, QD, FORMULATION: PILL
     Route: 048
     Dates: start: 20140101, end: 20150529

REACTIONS (1)
  - Adrenomegaly [Recovered/Resolved with Sequelae]

NARRATIVE: CASE EVENT DATE: 20150407
